FAERS Safety Report 13232710 (Version 2)
Quarter: 2017Q2

REPORT INFORMATION
  Report Type: Report from Study
  Country: US (occurrence: US)
  Receive Date: 20170214
  Receipt Date: 20170403
  Transmission Date: 20170830
  Serious: Yes (Hospitalization)
  Sender: FDA-Public Use
  Company Number: US-ACTELION-A-NJ2015-122565

PATIENT
  Age: 76 Year
  Sex: Female
  Weight: 69.39 kg

DRUGS (7)
  1. ELIQUIS [Concomitant]
     Active Substance: APIXABAN
  2. TRACLEER [Suspect]
     Active Substance: BOSENTAN
     Indication: PULMONARY ARTERIAL HYPERTENSION
     Dosage: 125 MG, BID
     Route: 048
     Dates: start: 20120829
  3. RIOCIGUAT [Concomitant]
     Active Substance: RIOCIGUAT
  4. TRACLEER [Suspect]
     Active Substance: BOSENTAN
     Dosage: UNK
     Route: 048
  5. TREPROSTINIL DIOLAMIN [Concomitant]
     Active Substance: TREPROSTINIL DIOLAMINE
     Dosage: UNK
  6. TYVASO [Concomitant]
     Active Substance: TREPROSTINIL
     Dosage: 6 BREATHS
     Route: 055
     Dates: start: 20161013
  7. TREPROSTINIL DIOLAMIN [Concomitant]
     Active Substance: TREPROSTINIL DIOLAMINE
     Dosage: 1.5 MG, TID
     Dates: start: 20160630

REACTIONS (21)
  - Blood potassium increased [Unknown]
  - Musculoskeletal pain [Unknown]
  - Pain [Unknown]
  - Dyspnoea [Not Recovered/Not Resolved]
  - Hypotension [Unknown]
  - Cough [Not Recovered/Not Resolved]
  - Pain in jaw [Unknown]
  - Nausea [Unknown]
  - Oral pain [Unknown]
  - Oropharyngeal pain [Unknown]
  - Acute kidney injury [Unknown]
  - Myalgia [Unknown]
  - Pain in extremity [Unknown]
  - Headache [Unknown]
  - Diarrhoea [Unknown]
  - Pulmonary hypertension [Unknown]
  - Feeling abnormal [Unknown]
  - Gait disturbance [Unknown]
  - Abdominal pain [Unknown]
  - Constipation [Unknown]
  - Throat irritation [Not Recovered/Not Resolved]
